FAERS Safety Report 11755076 (Version 2)
Quarter: 2016Q1

REPORT INFORMATION
  Report Type: Spontaneous
  Country: US (occurrence: US)
  Receive Date: 20151119
  Receipt Date: 20160210
  Transmission Date: 20160525
  Serious: Yes (Hospitalization, Other)
  Sender: FDA-Public Use
  Company Number: US-009507513-1511USA010028

PATIENT
  Sex: Male
  Weight: 124.72 kg

DRUGS (3)
  1. JANUMET [Suspect]
     Active Substance: METFORMIN HYDROCHLORIDE\SITAGLIPTIN PHOSPHATE
     Indication: TYPE 2 DIABETES MELLITUS
     Dosage: 50-1000MG QD
     Route: 048
     Dates: start: 20110903
  2. RAMIPRIL. [Concomitant]
     Active Substance: RAMIPRIL
     Indication: HYPERTENSION
     Dosage: UNK
     Dates: start: 1998
  3. JANUMET [Suspect]
     Active Substance: METFORMIN HYDROCHLORIDE\SITAGLIPTIN PHOSPHATE
     Dosage: 50-1000MG QD
     Route: 048
     Dates: end: 201401

REACTIONS (10)
  - Spinal osteoarthritis [Unknown]
  - Bile duct stent insertion [Unknown]
  - Inappropriate schedule of drug administration [Unknown]
  - Spinal laminectomy [Unknown]
  - Metastases to liver [Unknown]
  - Neuropathy peripheral [Unknown]
  - Sinusitis [Unknown]
  - Coronary artery disease [Unknown]
  - Adenocarcinoma pancreas [Unknown]
  - Pneumobilia [Unknown]

NARRATIVE: CASE EVENT DATE: 201401
